FAERS Safety Report 4451660-0 (Version None)
Quarter: 2004Q3

REPORT INFORMATION
  Report Type: 
  Country: None (occurrence: None)
  Receive Date: 20040915
  Receipt Date: 20040901
  Transmission Date: 20050211
  Serious: Yes (Hospitalization)
  Sender: FDA-Public Use
  Company Number: 2004056800

PATIENT
  Age: 35 Year
  Sex: Female
  Weight: 65 kg

DRUGS (5)
  1. ZITHROMAX [Suspect]
     Indication: SINUSITIS
     Dosage: 500 MG (500 MG,  1 IN 1 D), ORAL
     Route: 048
     Dates: start: 20040315, end: 20040317
  2. SULFASALAZINE [Concomitant]
  3. AMITRIPTYLINE HYDROCHLORIDE [Concomitant]
  4. TRIAMCINOLONE ACETONIDE [Concomitant]
  5. ALL OTHER THERAPEUTIC PRODUCTS (ALL OTHER THERAPEUTIC PRODUCTS) [Concomitant]

REACTIONS (5)
  - ALOPECIA [None]
  - AURICULAR SWELLING [None]
  - BLISTER [None]
  - DRUG HYPERSENSITIVITY [None]
  - MUSCULOSKELETAL STIFFNESS [None]
